FAERS Safety Report 9308708 (Version 1)
Quarter: 2013Q2

REPORT INFORMATION
  Report Type: Spontaneous
  Country: None (occurrence: US)
  Receive Date: 20130524
  Receipt Date: 20130524
  Transmission Date: 20140414
  Serious: No
  Sender: FDA-Public Use
  Company Number: US-NOVEN-13US006618

PATIENT
  Age: 36 Year
  Sex: Female
  Weight: 72.56 kg

DRUGS (1)
  1. MINIVELLE [Suspect]
     Indication: HOT FLUSH
     Dosage: 0.075 MG, 2/WK
     Route: 062
     Dates: start: 20130124, end: 20130331

REACTIONS (3)
  - Hypoaesthesia [Recovered/Resolved]
  - Chest pain [Recovered/Resolved]
  - Drug administered at inappropriate site [Recovered/Resolved]
